FAERS Safety Report 16764254 (Version 1)
Quarter: 2019Q3

REPORT INFORMATION
  Report Type: Report from Study
  Country: CO (occurrence: CO)
  Receive Date: 20190902
  Receipt Date: 20190902
  Transmission Date: 20191005
  Serious: Yes (Other)
  Sender: FDA-Public Use
  Company Number: CO-ACTELION-A-CH2019-191416

PATIENT
  Age: 52 Year
  Sex: Female
  Weight: 64 kg

DRUGS (4)
  1. OPSUMIT [Suspect]
     Active Substance: MACITENTAN
     Indication: PULMONARY ARTERIAL HYPERTENSION
     Dosage: 10 MG, QD
     Route: 048
     Dates: start: 2018, end: 20190726
  2. OPSUMIT [Suspect]
     Active Substance: MACITENTAN
     Dosage: 10 MG, QD
     Route: 048
     Dates: start: 20190814
  3. VENTAVIS [Concomitant]
     Active Substance: ILOPROST
     Dosage: UNK
     Route: 055
     Dates: end: 2019
  4. SILDENAFIL. [Concomitant]
     Active Substance: SILDENAFIL

REACTIONS (16)
  - Nasopharyngitis [Not Recovered/Not Resolved]
  - Spleen disorder [Not Recovered/Not Resolved]
  - Renal pain [Not Recovered/Not Resolved]
  - Arthralgia [Unknown]
  - Product supply issue [Unknown]
  - Sciatica [Unknown]
  - Headache [Not Recovered/Not Resolved]
  - Mitral valve incompetence [Not Recovered/Not Resolved]
  - Therapy cessation [Unknown]
  - Aggression [Not Recovered/Not Resolved]
  - Cardiac failure [Not Recovered/Not Resolved]
  - Immunodeficiency [Not Recovered/Not Resolved]
  - Rheumatic fever [Not Recovered/Not Resolved]
  - Nasal congestion [Not Recovered/Not Resolved]
  - Blood bilirubin increased [Not Recovered/Not Resolved]
  - Insomnia [Unknown]

NARRATIVE: CASE EVENT DATE: 2019
